FAERS Safety Report 12281519 (Version 1)
Quarter: 2016Q2

REPORT INFORMATION
  Report Type: Spontaneous
  Country: US (occurrence: None)
  Receive Date: 20160418
  Receipt Date: 20160418
  Transmission Date: 20160815
  Serious: Yes (Other)
  Sender: FDA-Public Use
  Company Number: None

PATIENT
  Age: 36 Year
  Sex: Female
  Weight: 63.5 kg

DRUGS (1)
  1. MIRENA [Suspect]
     Active Substance: LEVONORGESTREL
     Dates: start: 20140922

REACTIONS (4)
  - Pelvic pain [None]
  - Back pain [None]
  - Headache [None]
  - Ovarian cyst [None]

NARRATIVE: CASE EVENT DATE: 20160408
